FAERS Safety Report 6004667-6 (Version None)
Quarter: 2008Q4

REPORT INFORMATION
  Report Type: 
  Country: None (occurrence: None)
  Receive Date: 20081216
  Receipt Date: 20081204
  Transmission Date: 20090506
  Serious: Yes (Life-Threatening, Hospitalization)
  Sender: FDA-Public Use
  Company Number: US-SANOFI-SYNTHELABO-F03200800074

PATIENT
  Sex: Male
  Weight: 60.8 kg

DRUGS (9)
  1. PERI-COLACE [Concomitant]
     Indication: DRUG USE FOR UNKNOWN INDICATION
     Dosage: UNK
     Route: 048
     Dates: start: 20080317, end: 20080101
  2. LASIX [Concomitant]
     Indication: DRUG USE FOR UNKNOWN INDICATION
     Dosage: UNK
     Route: 048
     Dates: start: 20080317, end: 20080101
  3. ALTERNAGEL [Concomitant]
     Indication: DRUG USE FOR UNKNOWN INDICATION
     Dosage: UNK
     Route: 048
     Dates: start: 20080317, end: 20080101
  4. PRILOSEC [Concomitant]
     Indication: DRUG USE FOR UNKNOWN INDICATION
     Dosage: UNK
     Route: 048
     Dates: start: 20080322, end: 20080101
  5. ZOFRAN [Concomitant]
     Indication: DRUG USE FOR UNKNOWN INDICATION
     Dosage: UNK
     Route: 048
     Dates: start: 20080322, end: 20080323
  6. OXALIPLATIN [Suspect]
     Indication: COLORECTAL CANCER METASTATIC
     Dosage: 137 MG (85 MG/M2) EVERY 2 WEEKS
     Route: 042
     Dates: start: 20080317, end: 20080317
  7. AVASTIN [Suspect]
     Indication: COLORECTAL CANCER METASTATIC
     Dosage: 268 MG (5 MG/KG) EVERY 2 WEEKS
     Route: 042
     Dates: start: 20080317, end: 20080317
  8. LEUCOVORIN CALCIUM [Suspect]
     Indication: COLORECTAL CANCER METASTATIC
     Route: 042
     Dates: start: 20080317, end: 20080317
  9. FLUOROURACIL [Suspect]
     Indication: COLORECTAL CANCER METASTATIC
     Dosage: 648 MG (400 MG/M2) PUSH AND 3888 MG (2400 MG/M2) INFUSION EVERY 2 WEEKS
     Route: 042
     Dates: start: 20080311, end: 20080311

REACTIONS (5)
  - ANAEMIA [None]
  - DEEP VEIN THROMBOSIS [None]
  - GASTROINTESTINAL HAEMORRHAGE [None]
  - OESOPHAGITIS [None]
  - SHOCK HAEMORRHAGIC [None]
